FAERS Safety Report 4321113-9 (Version None)
Quarter: 2004Q1

REPORT INFORMATION
  Report Type: 
  Country: None (occurrence: None)
  Receive Date: 20040322
  Receipt Date: 20040123
  Transmission Date: 20041129
  Serious: Yes (Hospitalization)
  Sender: FDA-Public Use
  Company Number: CH-GLAXOSMITHKLINE-B0320863A

PATIENT
  Sex: Female

DRUGS (5)
  1. LAMICTAL [Suspect]
     Dosage: 100MG PER DAY
     Route: 048
     Dates: start: 20030515, end: 20030603
  2. ESCITALOPRAM [Suspect]
     Dosage: 15MG PER DAY
     Route: 048
     Dates: start: 20030321, end: 20030605
  3. LORAZEPAM [Suspect]
     Dosage: 3MG PER DAY
     Route: 048
     Dates: start: 20030501, end: 20030603
  4. OLANZAPINE [Suspect]
     Dosage: 5MG PER DAY
     Route: 048
     Dates: start: 20030514, end: 20030606
  5. MIRTAZAPINE [Suspect]
     Route: 065

REACTIONS (10)
  - DECREASED ACTIVITY [None]
  - DEPRESSED LEVEL OF CONSCIOUSNESS [None]
  - EXANTHEM [None]
  - FALL [None]
  - GAIT DISTURBANCE [None]
  - HAEMOGLOBIN DECREASED [None]
  - HAEMOTHORAX [None]
  - RIB FRACTURE [None]
  - SEDATION [None]
  - WHITE BLOOD CELL COUNT DECREASED [None]
